FAERS Safety Report 6014727-1 (Version None)
Quarter: 2008Q4

REPORT INFORMATION
  Report Type: 
  Country: None (occurrence: None)
  Receive Date: 20081126
  Receipt Date: 20080228
  Transmission Date: 20090506
  Serious: Yes (Other)
  Sender: FDA-Public Use
  Company Number: 168238USA

PATIENT
  Age: 2 Year
  Sex: Male
  Weight: 15.4 kg

DRUGS (5)
  1. CARBOPLATIN [Suspect]
     Indication: OPTIC TRACT GLIOMA
     Dosage: 3.5 MG (105 MG, 1 IN 1 M), INTRAVENOUS DRIP
     Route: 041
     Dates: start: 20070829, end: 20080103
  2. VINCRISTINE [Concomitant]
  3. DIPHENHYDRAMINE HYDROCHLORIDE [Concomitant]
  4. HYDROCORTISONE [Concomitant]
  5. RANIDITINE [Concomitant]

REACTIONS (1)
  - RESPIRATORY DISTRESS [None]
